FAERS Safety Report 11253642 (Version 1)
Quarter: 2015Q3

REPORT INFORMATION
  Report Type: Spontaneous
  Country: JP (occurrence: JP)
  Receive Date: 20150709
  Receipt Date: 20150709
  Transmission Date: 20151125
  Serious: Yes (Hospitalization)
  Sender: FDA-Public Use
  Company Number: JP-MALLINCKRODT-T201503339

PATIENT
  Age: 65 Year
  Sex: Male

DRUGS (5)
  1. CARBOCISTEINE [Concomitant]
     Active Substance: CARBOCYSTEINE
     Route: 048
  2. WYPAX [Concomitant]
     Active Substance: LORAZEPAM
     Route: 048
  3. TULOBUTEROL [Concomitant]
     Active Substance: TULOBUTEROL
     Route: 062
  4. SODIUM BICARBONATE. [Concomitant]
     Active Substance: SODIUM BICARBONATE
     Route: 042
  5. OFIRMEV [Suspect]
     Active Substance: ACETAMINOPHEN
     Indication: CANCER PAIN
     Dosage: 200 ML (3000 MG DAILY DOSE)
     Route: 042
     Dates: start: 20150415, end: 20150415

REACTIONS (2)
  - Loss of consciousness [Recovered/Resolved]
  - Dyspnoea [Recovered/Resolved]

NARRATIVE: CASE EVENT DATE: 20150415
